FAERS Safety Report 20833762 (Version 1)
Quarter: 2022Q2

REPORT INFORMATION
  Report Type: Spontaneous
  Country: US (occurrence: None)
  Receive Date: 20220513
  Receipt Date: 20220513
  Transmission Date: 20220720
  Serious: No
  Sender: FDA-Public Use
  Company Number: None

PATIENT
  Age: 36 Year
  Sex: Female
  Weight: 101.25 kg

DRUGS (3)
  1. DEXTROAMPHET SACCHARAT, AMPHET ASPARTATE, DEXTROAMPHET SULFATE AND AMP [Suspect]
     Active Substance: AMPHETAMINE ASPARTATE\AMPHETAMINE SULFATE\DEXTROAMPHETAMINE SACCHARATE\DEXTROAMPHETAMINE SULFATE
     Indication: Attention deficit hyperactivity disorder
     Dosage: FREQUENCY : 3 TIMES A DAY;,?QUANTITY: 90 TABLETS?
     Route: 048
     Dates: start: 20220510, end: 20220510
  2. ADDERALL [Concomitant]
     Active Substance: AMPHETAMINE ASPARTATE\AMPHETAMINE SULFATE\DEXTROAMPHETAMINE SACCHARATE\DEXTROAMPHETAMINE SULFATE
  3. NAPROXEN [Concomitant]
     Active Substance: NAPROXEN

REACTIONS (7)
  - Product substitution issue [None]
  - Insomnia [None]
  - Headache [None]
  - Neck pain [None]
  - Nausea [None]
  - Ageusia [None]
  - Feeling abnormal [None]

NARRATIVE: CASE EVENT DATE: 20220511
